FAERS Safety Report 19733719 (Version 6)
Quarter: 2022Q1

REPORT INFORMATION
  Report Type: Report from Study
  Country: US (occurrence: US)
  Receive Date: 20210823
  Receipt Date: 20220308
  Transmission Date: 20220423
  Serious: Yes (Hospitalization, Other)
  Sender: FDA-Public Use
  Company Number: US-PUMA BIOTECHNOLOGY, INC.-2020US002662

PATIENT

DRUGS (9)
  1. NERLYNX [Suspect]
     Active Substance: NERATINIB
     Indication: Breast cancer female
     Dosage: 120 MG (3 TABLETS), DAILY
     Route: 048
     Dates: start: 20200424, end: 2020
  2. NERLYNX [Suspect]
     Active Substance: NERATINIB
     Dosage: 160 MG (4 TABLETS), DAILY
     Route: 048
     Dates: start: 202005, end: 20201017
  3. NERLYNX [Suspect]
     Active Substance: NERATINIB
     Dosage: 240 MG (6 TABLETS), DAILY
     Route: 048
     Dates: start: 20201018, end: 2021
  4. NERLYNX [Suspect]
     Active Substance: NERATINIB
     Dosage: 160 MG (4 TABLETS), DAILY
     Route: 048
     Dates: start: 2021, end: 2021
  5. NERLYNX [Suspect]
     Active Substance: NERATINIB
     Dosage: 240 MG (6 TABLETS), DAILY
     Route: 048
     Dates: start: 2021, end: 2022
  6. NERLYNX [Suspect]
     Active Substance: NERATINIB
     Dosage: 3 TABLETS IN THE MORNING AND 3 IN THE EVENING
     Route: 048
     Dates: start: 2022
  7. CAPECITABINE [Suspect]
     Active Substance: CAPECITABINE
     Indication: Breast cancer female
     Dosage: 1500 MG, BID (FOR 14DAYS ON AND 7 DAYS OFF)
     Route: 065
     Dates: start: 20200424, end: 2020
  8. CAPECITABINE [Suspect]
     Active Substance: CAPECITABINE
     Dosage: 1000 MG, BID (14 DAYS ON/ 7 DAYS OFF)
     Route: 065
  9. CAPECITABINE [Suspect]
     Active Substance: CAPECITABINE
     Dosage: 1000 MG AM, 500 MG PM FOR 14 DAYS ON/ 7 DAYS OFF
     Route: 065

REACTIONS (9)
  - COVID-19 [Unknown]
  - Dehydration [Unknown]
  - Pruritus [Not Recovered/Not Resolved]
  - Ageusia [Unknown]
  - Constipation [Unknown]
  - Muscle spasms [Not Recovered/Not Resolved]
  - Diarrhoea [Not Recovered/Not Resolved]
  - Off label use [Unknown]
  - Inappropriate schedule of product administration [Unknown]

NARRATIVE: CASE EVENT DATE: 20200101
